FAERS Safety Report 4656439-2 (Version None)
Quarter: 2005Q2

REPORT INFORMATION
  Report Type: 
  Country: None (occurrence: None)
  Receive Date: 20050509
  Receipt Date: 20050428
  Transmission Date: 20051028
  Serious: Yes (Death)
  Sender: FDA-Public Use
  Company Number: GB-MERCK-0505GBR00028

PATIENT

DRUGS (2)
  1. COSMEGEN [Suspect]
     Indication: RHABDOMYOSARCOMA
     Route: 051
  2. [THERAPY UNSPECIFIED] [Suspect]
     Indication: RHABDOMYOSARCOMA
     Route: 065

REACTIONS (2)
  - PRESCRIBED OVERDOSE [None]
  - VENOUS OCCLUSION [None]
